FAERS Safety Report 16105957 (Version 2)
Quarter: 2019Q3

REPORT INFORMATION
  Report Type: Spontaneous
  Country: US (occurrence: US)
  Receive Date: 20190322
  Receipt Date: 20190906
  Transmission Date: 20191004
  Serious: Yes (Other)
  Sender: FDA-Public Use
  Company Number: US-SA-2018SA093186

PATIENT
  Age: 65 Year
  Sex: Female
  Weight: 117.9 kg

DRUGS (9)
  1. DOCETAXEL. [Suspect]
     Active Substance: DOCETAXEL
     Dosage: 60 MG, QCY
     Route: 042
     Dates: start: 201610, end: 201610
  2. NEOSAR [Concomitant]
     Active Substance: CYCLOPHOSPHAMIDE
  3. DOCETAXEL. [Suspect]
     Active Substance: DOCETAXEL
     Indication: BREAST CANCER FEMALE
     Dosage: 60 MG, QCY
     Route: 042
     Dates: start: 201603, end: 201603
  4. TOPAMAX [Concomitant]
     Active Substance: TOPIRAMATE
     Dosage: UNK UNK, UNK
     Route: 065
     Dates: start: 2014
  5. ADRIAMYCIN [Concomitant]
     Active Substance: DOXORUBICIN HYDROCHLORIDE
     Dosage: UNK UNK, UNK
     Route: 065
  6. LEVOTHYROXINE. [Concomitant]
     Active Substance: LEVOTHYROXINE
     Dosage: UNK UNK, UNK
     Route: 065
     Dates: start: 2012
  7. AMITRIPTYLINE [Concomitant]
     Active Substance: AMITRIPTYLINE
     Dosage: UNK UNK, UNK
     Route: 065
     Dates: start: 2013
  8. QUETIAPINE. [Concomitant]
     Active Substance: QUETIAPINE
     Dosage: UNK UNK, UNK
     Route: 065
     Dates: start: 2015, end: 201811
  9. CONTRAVE [Concomitant]
     Active Substance: BUPROPION HYDROCHLORIDE\NALTREXONE HYDROCHLORIDE
     Dosage: UNK UNK, UNK
     Route: 065
     Dates: start: 2016

REACTIONS (1)
  - Alopecia [Recovering/Resolving]

NARRATIVE: CASE EVENT DATE: 201605
